FAERS Safety Report 5423020-7 (Version None)
Quarter: 2007Q3

REPORT INFORMATION
  Report Type: 
  Country: None (occurrence: None)
  Receive Date: 20070822
  Receipt Date: 20070810
  Transmission Date: 20080115
  Serious: Yes (Other)
  Sender: FDA-Public Use
  Company Number: US-PFIZER INC-2007056705

PATIENT
  Sex: Female
  Weight: 66 kg

DRUGS (12)
  1. BEXTRA [Suspect]
     Indication: SYSTEMIC LUPUS ERYTHEMATOSUS
  2. BEXTRA [Suspect]
     Indication: ARTHRITIS
  3. ANALGESICS [Suspect]
     Dates: start: 20070701, end: 20070701
  4. ALL OTHER THERAPEUTIC PRODUCTS [Concomitant]
  5. ACCUPRIL [Concomitant]
  6. SPIRONOLACTONE [Concomitant]
  7. NORTRIPTYLINE HCL [Concomitant]
  8. DICYCLOMINE [Concomitant]
  9. TRIAMTERENE AND HYDROCHLOROTHIAZIDE [Concomitant]
  10. MONTELUKAST SODIUM [Concomitant]
  11. FORADIL [Concomitant]
  12. OMEGA 3 [Concomitant]

REACTIONS (9)
  - ACCIDENT [None]
  - BLOOD PRESSURE INCREASED [None]
  - CONDITION AGGRAVATED [None]
  - DEATH OF RELATIVE [None]
  - MUSCLE INJURY [None]
  - MUSCLE OPERATION [None]
  - PANIC ATTACK [None]
  - SKIN HAEMORRHAGE [None]
  - SYSTEMIC LUPUS ERYTHEMATOSUS [None]
